FAERS Safety Report 19403293 (Version 1)
Quarter: 2021Q2

REPORT INFORMATION
  Report Type: Spontaneous
  Country: US (occurrence: US)
  Receive Date: 20210610
  Receipt Date: 20210610
  Transmission Date: 20210717
  Serious: No
  Sender: FDA-Public Use
  Company Number: US-GALDERMA-US2020048819

PATIENT
  Age: 19 Year
  Sex: Male

DRUGS (1)
  1. EPIDUO FORTE [Suspect]
     Active Substance: ADAPALENE\BENZOYL PEROXIDE
     Indication: PRODUCT USED FOR UNKNOWN INDICATION
     Dosage: 0.3%/2.5%
     Route: 061

REACTIONS (5)
  - Off label use [Recovered/Resolved]
  - Prescribed underdose [Recovered/Resolved]
  - Intentional product misuse [Recovered/Resolved]
  - Skin ulcer [Unknown]
  - Skin burning sensation [Unknown]

NARRATIVE: CASE EVENT DATE: 202011
